FAERS Safety Report 18347497 (Version 3)
Quarter: 2021Q1

REPORT INFORMATION
  Report Type: Report from Study
  Country: US (occurrence: US)
  Receive Date: 20201006
  Receipt Date: 20210218
  Transmission Date: 20210419
  Serious: Yes (Death, Hospitalization)
  Sender: FDA-Public Use
  Company Number: NVSC2020US265918

PATIENT
  Age: 19 Year
  Sex: Male
  Weight: 97 kg

DRUGS (1)
  1. KYMRIAH [Suspect]
     Active Substance: TISAGENLECLEUCEL
     Indication: ACUTE LYMPHOCYTIC LEUKAEMIA RECURRENT
     Dosage: 11 ML, ONCE/SINGLE (0.8E8 CAR?POSITIVE VIABLE T CELLS)
     Route: 042
     Dates: start: 20200706, end: 20200706

REACTIONS (4)
  - Pancytopenia [Fatal]
  - Pyrexia [Unknown]
  - Haemoglobin decreased [Unknown]
  - Fungal infection [Fatal]

NARRATIVE: CASE EVENT DATE: 20200808
